FAERS Safety Report 7777541-2 (Version None)
Quarter: 2011Q3

REPORT INFORMATION
  Report Type: 
  Country: None (occurrence: None)
  Receive Date: 20110926
  Receipt Date: 20110919
  Transmission Date: 20111222
  Serious: Yes (Other)
  Sender: FDA-Public Use
  Company Number: US-SANOFI-AVENTIS-2011SA062010

PATIENT

DRUGS (3)
  1. MULTAQ [Suspect]
     Route: 048
     Dates: start: 20110301, end: 20110911
  2. DILTIAZEM [Suspect]
     Route: 065
     Dates: start: 20100101, end: 20110801
  3. MULTAQ [Suspect]
     Route: 048
     Dates: start: 20110912

REACTIONS (5)
  - BRADYCARDIA [None]
  - WRONG TECHNIQUE IN DRUG USAGE PROCESS [None]
  - LOSS OF CONSCIOUSNESS [None]
  - DIZZINESS [None]
  - VENTRICULAR EXTRASYSTOLES [None]
